FAERS Safety Report 5787857-7 (Version None)
Quarter: 2008Q2

REPORT INFORMATION
  Report Type: 
  Country: None (occurrence: None)
  Receive Date: 20080624
  Receipt Date: 20080624
  Transmission Date: 20081010
  Serious: No
  Sender: FDA-Public Use
  Company Number: None

PATIENT
  Age: 54 Year
  Sex: Female

DRUGS (2)
  1. CHANTIX [Suspect]
     Indication: TOBACCO USER
     Dates: start: 20080501, end: 20080601
  2. CYMBALTA [Concomitant]

REACTIONS (5)
  - HEADACHE [None]
  - INSOMNIA [None]
  - MOOD ALTERED [None]
  - NIGHTMARE [None]
  - PARANOIA [None]
